FAERS Safety Report 7717484-3 (Version None)
Quarter: 2011Q3

REPORT INFORMATION
  Report Type: 
  Country: None (occurrence: None)
  Receive Date: 20110824
  Receipt Date: 20110810
  Transmission Date: 20111222
  Serious: Yes (Other)
  Sender: FDA-Public Use
  Company Number: MC201100367

PATIENT

DRUGS (1)
  1. CLEVIPREX [Suspect]

REACTIONS (3)
  - OXYGEN SATURATION DECREASED [None]
  - VENTILATION PERFUSION MISMATCH [None]
  - INFUSION RELATED REACTION [None]
